FAERS Safety Report 17849560 (Version 2)
Quarter: 2021Q4

REPORT INFORMATION
  Report Type: Report from Study
  Country: CA (occurrence: CA)
  Receive Date: 20200602
  Receipt Date: 20211009
  Transmission Date: 20220303
  Serious: Yes (Other)
  Sender: FDA-Public Use
  Company Number: PHHY2017CA161109

PATIENT
  Age: 67 Year
  Sex: Male
  Weight: 64 kg

DRUGS (12)
  1. COSENTYX [Suspect]
     Active Substance: SECUKINUMAB
     Indication: Psoriasis
     Dosage: 300 MG, QW
     Route: 058
     Dates: start: 20170713, end: 20170810
  2. COSENTYX [Suspect]
     Active Substance: SECUKINUMAB
     Indication: Ankylosing spondylitis
     Dosage: 150 MG, QMO
     Route: 058
     Dates: start: 20170917, end: 20170917
  3. DIOVAN [Concomitant]
     Active Substance: VALSARTAN
     Indication: Hypertension
     Dosage: 12.5 MG, QD
     Route: 065
     Dates: start: 2002
  4. IMITREX [Concomitant]
     Active Substance: SUMATRIPTAN SUCCINATE
     Indication: Migraine
     Dosage: UNK UNK, PRN
     Route: 065
     Dates: start: 2000
  5. LATANOPROST [Concomitant]
     Active Substance: LATANOPROST
     Indication: Glaucoma
     Dosage: UNK , QD (ONE DROP EACH EYE)
     Route: 065
     Dates: start: 201305
  6. ACETAMINOPHEN\TRAMADOL [Concomitant]
     Active Substance: ACETAMINOPHEN\TRAMADOL
     Indication: Psoriasis
     Dosage: 2 DF, PRN
     Route: 065
     Dates: start: 20130530
  7. ACETAMINOPHEN\TRAMADOL [Concomitant]
     Active Substance: ACETAMINOPHEN\TRAMADOL
     Indication: Ankylosing spondylitis
  8. DEPO-MEDROL [Concomitant]
     Active Substance: METHYLPREDNISOLONE ACETATE
     Indication: Ankylosing spondylitis
     Dosage: UNK , QD
     Route: 065
     Dates: start: 20171013, end: 20171013
  9. ADALIMUMAB [Concomitant]
     Active Substance: ADALIMUMAB
     Indication: Ankylosing spondylitis
     Dosage: UNK
     Route: 065
  10. ACETAMINOPHEN\CAFFEINE\CODEINE PHOSPHATE [Concomitant]
     Active Substance: ACETAMINOPHEN\CAFFEINE\CODEINE PHOSPHATE
     Indication: Ankylosing spondylitis
     Dosage: 1 DF (60,600,30 MG), PRN
     Route: 065
     Dates: start: 201710
  11. CALCIUM [Concomitant]
     Active Substance: CALCIUM
     Indication: Product used for unknown indication
     Dosage: 1000 MG, UNK
     Route: 065
  12. VITAMIN D [Concomitant]
     Active Substance: VITAMIN D NOS
     Indication: Product used for unknown indication
     Dosage: 2000 IU, UNK
     Route: 065

REACTIONS (20)
  - Colitis [Recovered/Resolved]
  - Abdominal pain [Recovered/Resolved]
  - Diarrhoea [Recovered/Resolved]
  - Ileus [Recovered/Resolved]
  - Colitis [Recovered/Resolved]
  - Gastrointestinal wall thickening [Recovered/Resolved]
  - Intestinal fibrosis [Recovered/Resolved]
  - Frequent bowel movements [Recovered/Resolved]
  - Haematochezia [Recovered/Resolved]
  - Anal incontinence [Unknown]
  - Mucous stools [Recovered/Resolved]
  - Enterocolitis [Recovered/Resolved]
  - Colitis ulcerative [Not Recovered/Not Resolved]
  - Diarrhoea [Recovered/Resolved]
  - Colitis [Not Recovered/Not Resolved]
  - Haemorrhoids [Recovered/Resolved]
  - Middle insomnia [Recovered/Resolved]
  - Spondylitis [Not Recovered/Not Resolved]
  - Computerised tomogram liver abnormal [Unknown]
  - Therapeutic product effect incomplete [Unknown]

NARRATIVE: CASE EVENT DATE: 20170801
